FAERS Safety Report 5691336-5 (Version None)
Quarter: 2008Q1

REPORT INFORMATION
  Report Type: 
  Country: None (occurrence: None)
  Receive Date: 20080331
  Receipt Date: 20080320
  Transmission Date: 20080703
  Serious: Yes (Death, Life-Threatening, Hospitalization)
  Sender: FDA-Public Use
  Company Number: CLOF-10718

PATIENT
  Age: 71 Year
  Sex: Male

DRUGS (10)
  1. CLOFARABINE      (CLOFARABINE) SOLUTION FOR INFUSION [Suspect]
     Indication: MYELOID LEUKAEMIA
     Dosage: 30 MG/M2, QDX5, INTRAVENOUS
     Route: 042
     Dates: start: 20071005, end: 20071009
  2. ACETAMINOPHEN [Concomitant]
  3. BENADRYL [Concomitant]
  4. ALLOPURINOL [Concomitant]
  5. CIPROFLOXACIN [Concomitant]
  6. HYDRALAZINE HCL [Concomitant]
  7. .............................. [Concomitant]
  8. HYDREA [Concomitant]
  9. LIPITOR [Concomitant]
  10. ASPIRIN [Concomitant]

REACTIONS (19)
  - ABDOMINAL DISTENSION [None]
  - ASPERGILLOSIS [None]
  - BLISTER [None]
  - CATHETER RELATED INFECTION [None]
  - DELIRIUM [None]
  - EYELID PTOSIS [None]
  - FEBRILE NEUTROPENIA [None]
  - GASTROINTESTINAL SOUNDS ABNORMAL [None]
  - GENERAL PHYSICAL HEALTH DETERIORATION [None]
  - HAEMATOCRIT DECREASED [None]
  - HAEMOGLOBIN DECREASED [None]
  - HYPERDYNAMIC PRECORDIUM [None]
  - LOBAR PNEUMONIA [None]
  - PAIN [None]
  - PLATELET COUNT DECREASED [None]
  - RENAL FAILURE ACUTE [None]
  - SINUSITIS FUNGAL [None]
  - STAPHYLOCOCCAL INFECTION [None]
  - TACHYCARDIA [None]
